FAERS Safety Report 11861928 (Version 1)
Quarter: 2015Q4

REPORT INFORMATION
  Report Type: Spontaneous
  Country: US (occurrence: US)
  Receive Date: 20151222
  Receipt Date: 20151222
  Transmission Date: 20160305
  Serious: Yes (Hospitalization)
  Sender: FDA-Public Use
  Company Number: US-ROCHE-1233849

PATIENT
  Sex: Male

DRUGS (4)
  1. PEGASYS [Suspect]
     Active Substance: PEGINTERFERON ALFA-2A
     Indication: CHRONIC HEPATITIS C
     Route: 058
     Dates: start: 20120916
  2. TELAPREVIR [Suspect]
     Active Substance: TELAPREVIR
     Indication: CHRONIC HEPATITIS C
     Route: 065
     Dates: start: 20120916
  3. COPEGUS [Suspect]
     Active Substance: RIBAVIRIN
     Indication: CHRONIC HEPATITIS C
     Dosage: DAILY: DIVIDED DOSES
     Route: 048
     Dates: start: 20120916
  4. COPEGUS [Suspect]
     Active Substance: RIBAVIRIN
     Route: 048

REACTIONS (6)
  - Headache [Unknown]
  - Hypertension [Unknown]
  - Migraine [Unknown]
  - Anaemia [Unknown]
  - Platelet count decreased [Unknown]
  - Neutropenia [Unknown]
